FAERS Safety Report 5477536-8 (Version None)
Quarter: 2007Q4

REPORT INFORMATION
  Report Type: 
  Country: None (occurrence: None)
  Receive Date: 20071002
  Receipt Date: 20070919
  Transmission Date: 20080405
  Serious: Yes (Hospitalization)
  Sender: FDA-Public Use
  Company Number: 2007IP000040

PATIENT
  Age: 83 Year
  Sex: Male

DRUGS (6)
  1. BRONUCH OPHTHALMIC SOLUTION (BROMFENAC OPHTHALMIC SOLUTION 0.1%) (BRON [Suspect]
     Indication: CATARACT OPERATION COMPLICATION
     Dosage: QID
     Dates: start: 20070904, end: 20070907
  2. VIGAMOX [Suspect]
     Dosage: QID
     Dates: start: 20070903, end: 20070907
  3. OPEGAN HI [Concomitant]
  4. VISUALIN [Concomitant]
  5. MYDRIN-P [Concomitant]
  6. DIAGNOGREEN [Concomitant]

REACTIONS (3)
  - CORNEAL DEGENERATION [None]
  - CORNEAL OPACITY [None]
  - INTRAOCULAR PRESSURE INCREASED [None]
